FAERS Safety Report 7511523-0 (Version None)
Quarter: 2011Q2

REPORT INFORMATION
  Report Type: 
  Country: None (occurrence: None)
  Receive Date: 20110531
  Receipt Date: 20110510
  Transmission Date: 20111010
  Serious: No
  Sender: FDA-Public Use
  Company Number: US-B.I. PHARMACEUTICALS,INC./RIDGEFIELD-2011-BP-09298BP

PATIENT
  Sex: Female

DRUGS (5)
  1. CENTRUM SILVER [Concomitant]
  2. ZOCOR [Concomitant]
  3. PRADAXA [Suspect]
     Indication: ATRIAL FIBRILLATION
     Dosage: 300 MG
     Dates: start: 20110309, end: 20110324
  4. PRADAXA [Suspect]
     Indication: TRANSIENT ISCHAEMIC ATTACK
  5. LOVAZA [Concomitant]

REACTIONS (2)
  - OEDEMA PERIPHERAL [None]
  - HYPERSENSITIVITY [None]
